FAERS Safety Report 18848853 (Version 1)
Quarter: 2021Q1

REPORT INFORMATION
  Report Type: Spontaneous
  Country: DE (occurrence: DE)
  Receive Date: 20210205
  Receipt Date: 20210205
  Transmission Date: 20210419
  Serious: Yes (Hospitalization)
  Sender: FDA-Public Use
  Company Number: NVSC2021DE024643

PATIENT
  Age: 13 Year
  Sex: Female
  Weight: 50 kg

DRUGS (1)
  1. IBUPROFEN. [Suspect]
     Active Substance: IBUPROFEN
     Indication: SUICIDAL IDEATION
     Dosage: 7200 MG, QD (7200 MG MILLGRAM(S) EVERY DAYS 18 SEPARATED DOSES) (LAST DOSE RECEIVED ON 05 APR 2020)
     Route: 048
     Dates: start: 20200405

REACTIONS (2)
  - Intentional overdose [Unknown]
  - Toxicity to various agents [Unknown]

NARRATIVE: CASE EVENT DATE: 20200405
